FAERS Safety Report 4957042-7 (Version None)
Quarter: 2006Q1

REPORT INFORMATION
  Report Type: 
  Country: None (occurrence: None)
  Receive Date: 20060321
  Receipt Date: 20060321
  Transmission Date: 20060701
  Serious: Yes (Hospitalization, Other)
  Sender: FDA-Public Use
  Company Number: HQWYE285810JAN06

PATIENT
  Age: 58 Year
  Sex: Female

DRUGS (3)
  1. TYGACIL [Suspect]
     Indication: MYCOBACTERIAL INFECTION
     Dosage: 50 MG 1X PER 1 DAY, INTRAVENOUS
     Route: 042
     Dates: start: 20051225
  2. TYGACIL [Suspect]
     Indication: SINUSITIS
     Dosage: 50 MG 1X PER 1 DAY, INTRAVENOUS
     Route: 042
     Dates: start: 20051225
  3. AMIKACIN [Concomitant]

REACTIONS (3)
  - EYE PAIN [None]
  - NAUSEA [None]
  - VOMITING [None]
